FAERS Safety Report 11749540 (Version 1)
Quarter: 2015Q4

REPORT INFORMATION
  Report Type: Spontaneous
  Country: CN (occurrence: CN)
  Receive Date: 20151118
  Receipt Date: 20151118
  Transmission Date: 20160304
  Serious: Yes (Death)
  Sender: FDA-Public Use
  Company Number: CN-WATSON-2015-19155

PATIENT
  Age: 47 Year
  Sex: Female

DRUGS (2)
  1. DIPYRIDAMOLE (UNKNOWN) [Suspect]
     Active Substance: DIPYRIDAMOLE
     Indication: MALIGNANT ATROPHIC PAPULOSIS
     Route: 065
  2. ACETYLSALICYLIC ACID [Suspect]
     Active Substance: ASPIRIN
     Indication: MALIGNANT ATROPHIC PAPULOSIS
     Dosage: 100 MG ONCE A DAY
     Route: 065

REACTIONS (1)
  - Gastrointestinal haemorrhage [Fatal]
